FAERS Safety Report 9299140 (Version 1)
Quarter: 2013Q2

REPORT INFORMATION
  Report Type: Spontaneous
  Country: IT (occurrence: IT)
  Receive Date: 20130520
  Receipt Date: 20130520
  Transmission Date: 20140414
  Serious: Yes (Hospitalization)
  Sender: FDA-Public Use
  Company Number: IT-MYLANLABS-2013S1010423

PATIENT
  Age: 39 Year
  Sex: Female

DRUGS (11)
  1. CLOZAPINE [Suspect]
     Indication: BIPOLAR I DISORDER
     Dosage: 200MG DAILY
     Route: 065
  2. LITHIUM [Suspect]
     Indication: BIPOLAR I DISORDER
     Dosage: 600MG DAILY
     Route: 065
  3. PIPAMPERONE [Suspect]
     Indication: BIPOLAR I DISORDER
     Dosage: 80MG DAILY
     Route: 065
  4. HALOPERIDOL [Suspect]
     Indication: AGITATION
     Dosage: TITRATED UP TO 7MG DAILY
     Route: 030
  5. APOMORPHINE [Suspect]
     Indication: NEUROLEPTIC MALIGNANT SYNDROME
     Dosage: 24MG
     Route: 058
  6. CARBIDOPA LEVODOPA [Suspect]
     Indication: NEUROLEPTIC MALIGNANT SYNDROME
     Dosage: LEVODOPA/CARBIDOPA TITRATED UP TO 250/25MG THREE TIMES A DAY
     Route: 065
  7. VALPROIC ACID [Concomitant]
     Indication: BIPOLAR I DISORDER
     Dosage: 700MG DAILY
     Route: 065
  8. DIAZEPAM [Concomitant]
     Indication: AGITATION
     Dosage: TITRATED UP TO 10MG DAILY
     Route: 065
  9. DIAZEPAM [Concomitant]
     Dosage: 20 TO 30MG DAILY
     Route: 042
  10. PROPOFOL [Concomitant]
     Indication: ANAESTHESIA
     Dosage: 200MG
     Route: 042
  11. ATRACURIUM BESILATE [Concomitant]
     Indication: MUSCLE RELAXANT THERAPY
     Route: 042

REACTIONS (2)
  - Neuroleptic malignant syndrome [Recovering/Resolving]
  - Catatonia [Recovering/Resolving]
